FAERS Safety Report 5663891-2 (Version None)
Quarter: 2008Q1

REPORT INFORMATION
  Report Type: 
  Country: None (occurrence: None)
  Receive Date: 20080311
  Receipt Date: 20080303
  Transmission Date: 20080703
  Serious: Yes (Other)
  Sender: FDA-Public Use
  Company Number: ADE2008-0140

PATIENT
  Sex: Male

DRUGS (1)
  1. CITALOPRAM HYDROBROMIDE [Suspect]
     Dosage: 20MG 2 X DAILY PO
     Route: 048
     Dates: start: 20080101, end: 20080113

REACTIONS (1)
  - CONVULSION [None]
